FAERS Safety Report 11649916 (Version 3)
Quarter: 2015Q4

REPORT INFORMATION
  Report Type: Report from Study
  Country: BR (occurrence: BR)
  Receive Date: 20151021
  Receipt Date: 20151103
  Transmission Date: 20160304
  Serious: Yes (Hospitalization)
  Sender: FDA-Public Use
  Company Number: BR-GLAXOSMITHKLINE-BR2015133901

PATIENT
  Age: 21 Year
  Sex: Male
  Weight: 71.5 kg

DRUGS (8)
  1. BLINDED PRIMAQUINE [Suspect]
     Active Substance: PRIMAQUINE PHOSPHATE
     Indication: PLASMODIUM VIVAX INFECTION
     Dosage: UNK
     Route: 048
     Dates: start: 20150128
  2. BLINDED NO THERAPY [Suspect]
     Active Substance: UNSPECIFIED INGREDIENT
     Indication: PLASMODIUM VIVAX INFECTION
     Dosage: UNK
     Route: 048
     Dates: start: 20150128
  3. BLINDED TAFENOQUINE [Suspect]
     Active Substance: TAFENOQUINE
     Indication: PLASMODIUM VIVAX INFECTION
     Dosage: UNK
     Route: 048
     Dates: start: 20150128
  4. BLINDED TAFENOQUINE [Suspect]
     Active Substance: TAFENOQUINE
     Indication: PLASMODIUM VIVAX INFECTION
     Dosage: UNK
     Route: 048
     Dates: start: 20150128
  5. CHLOROQUINE. [Suspect]
     Active Substance: CHLOROQUINE
     Indication: PLASMODIUM VIVAX INFECTION
     Dosage: UNK
     Route: 048
     Dates: start: 20150128
  6. BLINDED PRIMAQUINE [Suspect]
     Active Substance: PRIMAQUINE PHOSPHATE
     Indication: PLASMODIUM VIVAX INFECTION
     Dosage: UNK
     Route: 048
     Dates: start: 20150128
  7. CHLOROQUINE. [Suspect]
     Active Substance: CHLOROQUINE
     Indication: PLASMODIUM VIVAX INFECTION
     Dosage: UNK
     Route: 048
     Dates: start: 20150128
  8. BLINDED PLACEBO [Suspect]
     Active Substance: INVESTIGATIONAL PRODUCT
     Indication: PLASMODIUM VIVAX INFECTION
     Dosage: UNK
     Route: 048
     Dates: start: 20150128

REACTIONS (1)
  - Gastroenteritis [Recovered/Resolved]

NARRATIVE: CASE EVENT DATE: 20150405
